FAERS Safety Report 8390364-9 (Version None)
Quarter: 2012Q1

REPORT INFORMATION
  Report Type: 
  Country: None (occurrence: None)
  Receive Date: 20120323
  Receipt Date: 20110509
  Transmission Date: 20120608
  Serious: Yes (Other)
  Sender: FDA-Public Use
  Company Number: 163-21880-11031279

PATIENT
  Age: 67 Year
  Sex: Male
  Weight: 78.0187 kg

DRUGS (7)
  1. LOREAZEPAM (LORAZEPAM) [Concomitant]
  2. AVODART [Concomitant]
  3. OXYCODONE AND ACETAMINOPHEN (OXYCOCET) [Concomitant]
  4. REVLIMID [Suspect]
     Indication: MULTIPLE MYELOMA
     Dosage: 25 MG, 1 IN1  D, PO
     Route: 048
     Dates: start: 20071226
  5. DEXAMETHASONE [Concomitant]
  6. WARFARIN SODIUM [Concomitant]
  7. TAMSULOSIN HCL [Concomitant]

REACTIONS (4)
  - FATIGUE [None]
  - MUSCULOSKELETAL PAIN [None]
  - WHITE BLOOD CELL COUNT DECREASED [None]
  - DIARRHOEA [None]
